FAERS Safety Report 14596118 (Version 2)
Quarter: 2018Q2

REPORT INFORMATION
  Report Type: Report from Study
  Country: US (occurrence: US)
  Receive Date: 20180303
  Receipt Date: 20180413
  Transmission Date: 20180711
  Serious: Yes (Other)
  Sender: FDA-Public Use
  Company Number: US-GLAXOSMITHKLINE-US2018GSK034829

PATIENT
  Age: 33 Year
  Sex: Female
  Weight: 100.7 kg

DRUGS (10)
  1. BENADRYL [Concomitant]
     Active Substance: DIPHENHYDRAMINE HYDROCHLORIDE
     Indication: MULTIPLE ALLERGIES
     Dosage: UNK UNK, WE
     Route: 048
     Dates: start: 20171224
  2. PROAIR HFA [Concomitant]
     Active Substance: ALBUTEROL SULFATE
     Indication: ASTHMA
     Dosage: 2 PUFF(S), WE
     Route: 055
     Dates: start: 20171224
  3. CAFFEINE. [Concomitant]
     Active Substance: CAFFEINE
     Indication: PRODUCT USED FOR UNKNOWN INDICATION
     Dosage: 3 X WEEK
     Dates: start: 20171224
  4. MEPOLIZUMAB [Suspect]
     Active Substance: MEPOLIZUMAB
     Indication: ASTHMA
     Dosage: 1 DF, MONTHLY
     Route: 042
     Dates: start: 20170101
  5. NORTRIPTYLINE [Concomitant]
     Active Substance: NORTRIPTYLINE
     Indication: MIGRAINE
     Dosage: 1 DF, QD
     Route: 048
     Dates: start: 20171224, end: 20180120
  6. PRENATAL VITAMINS [Concomitant]
     Active Substance: VITAMINS
     Indication: SUPPLEMENTATION THERAPY
     Dosage: 1 DF, QD
     Route: 048
  7. DHA [Concomitant]
     Active Substance: DIETARY SUPPLEMENT
     Indication: PRODUCT USED FOR UNKNOWN INDICATION
     Dosage: 1 DF, QD
     Route: 048
     Dates: start: 20180129
  8. TYLENOL [Concomitant]
     Active Substance: ACETAMINOPHEN
     Indication: HEADACHE
     Dosage: 2 DF, 2 X WEEK
     Route: 048
     Dates: start: 20171224
  9. ZYFLO CR [Concomitant]
     Active Substance: ZILEUTON
     Indication: ASTHMA
     Dosage: 1000 MG, BID
     Route: 048
     Dates: start: 20171224, end: 20180120
  10. SINGULAIR [Concomitant]
     Active Substance: MONTELUKAST SODIUM
     Indication: ASTHMA
     Dosage: 10 MG, QD
     Route: 048
     Dates: start: 20180205

REACTIONS (2)
  - Exposure during pregnancy [Unknown]
  - Migraine [Unknown]

NARRATIVE: CASE EVENT DATE: 20171224
